FAERS Safety Report 6644614-7 (Version None)
Quarter: 2010Q1

REPORT INFORMATION
  Report Type: 
  Country: None (occurrence: None)
  Receive Date: 20100322
  Receipt Date: 20100310
  Transmission Date: 20100710
  Serious: Yes (Life-Threatening)
  Sender: FDA-Public Use
  Company Number: JP-PFIZER INC-2010031125

PATIENT
  Age: 60 Year
  Sex: Male

DRUGS (3)
  1. TRIAZOLAM [Suspect]
     Dosage: 2.5 MG
     Route: 048
  2. EPERISONE [Suspect]
     Dosage: 5000 MG
     Route: 048
  3. NIFEDIPINE [Concomitant]
     Dosage: 40 MG, 1X/DAY

REACTIONS (4)
  - ELECTROCARDIOGRAM QT PROLONGED [None]
  - INTENTIONAL OVERDOSE [None]
  - SUICIDE ATTEMPT [None]
  - TORSADE DE POINTES [None]
